FAERS Safety Report 9260556 (Version 1)
Quarter: 2013Q2

REPORT INFORMATION
  Report Type: Spontaneous
  Country: US (occurrence: US)
  Receive Date: 20130429
  Receipt Date: 20130429
  Transmission Date: 20140414
  Serious: No
  Sender: FDA-Public Use
  Company Number: US-PFIZER INC-2013133436

PATIENT
  Age: 45 Year
  Sex: Male
  Weight: 88.4 kg

DRUGS (4)
  1. PRISTIQ [Suspect]
     Indication: DEPRESSION
     Dosage: UNK
     Dates: start: 2007, end: 2009
  2. REMERON [Suspect]
     Indication: DEPRESSION
     Dosage: UNK
     Dates: start: 2012, end: 2012
  3. PRAVASTATIN [Concomitant]
     Indication: BLOOD CHOLESTEROL ABNORMAL
     Dosage: 10 MG DAILY
  4. OMEPRAZOLE [Concomitant]
     Indication: GASTROENTERITIS
     Dosage: 40 MG, DAILY

REACTIONS (2)
  - Chest pain [Unknown]
  - Activities of daily living impaired [Recovered/Resolved]
